FAERS Safety Report 15916728 (Version 1)
Quarter: 2019Q1

REPORT INFORMATION
  Report Type: Spontaneous
  Country: US (occurrence: US)
  Receive Date: 20190115
  Receipt Date: 20190115
  Transmission Date: 20190417
  Serious: Yes (Other)
  Sender: FDA-Public Use
  Company Number: None

PATIENT

DRUGS (1)
  1. TUBERCULIN PURIFIED PROTEIN DERIVATIV [Suspect]
     Active Substance: TUBERCULIN PURIFIED PROTEIN DERIVATIVE
     Indication: TUBERCULIN TEST
     Dosage: ?          OTHER DOSE:0.1ML;OTHER FREQUENCY:YEARLY;?
     Route: 023
     Dates: start: 20181203, end: 20181219

REACTIONS (2)
  - Tuberculin test false positive [None]
  - Product complaint [None]

NARRATIVE: CASE EVENT DATE: 20181203
